FAERS Safety Report 6097621-X (Version None)
Quarter: 2009Q1

REPORT INFORMATION
  Report Type: 
  Country: None (occurrence: None)
  Receive Date: 20090227
  Receipt Date: 20090218
  Transmission Date: 20090719
  Serious: Yes (Hospitalization, Other)
  Sender: FDA-Public Use
  Company Number: ES-AVENTIS-200911719GDDC

PATIENT
  Sex: Male

DRUGS (1)
  1. TAXOTERE [Suspect]
     Indication: LUNG CANCER METASTATIC
     Dosage: DOSE: UNK
     Route: 042
     Dates: start: 20090128, end: 20090128

REACTIONS (1)
  - CARDIO-RESPIRATORY ARREST [None]
